FAERS Safety Report 20871646 (Version 1)
Quarter: 2022Q2

REPORT INFORMATION
  Report Type: Spontaneous
  Country: US (occurrence: None)
  Receive Date: 20220524
  Receipt Date: 20220524
  Transmission Date: 20220720
  Serious: Yes (Life-Threatening)
  Sender: FDA-Public Use
  Company Number: None

PATIENT
  Age: 51 Year
  Sex: Male
  Weight: 82.9 kg

DRUGS (1)
  1. LUMASON [Suspect]
     Active Substance: SULFUR HEXAFLUORIDE
     Indication: Scan with contrast
     Route: 042
     Dates: start: 20220513

REACTIONS (7)
  - Anaphylactic reaction [None]
  - Hyporesponsive to stimuli [None]
  - Injection related reaction [None]
  - Tachypnoea [None]
  - Dyspnoea [None]
  - Hypotension [None]
  - Electrocardiogram ST segment elevation [None]

NARRATIVE: CASE EVENT DATE: 20220513
